FAERS Safety Report 23384423 (Version 2)
Quarter: 2024Q1

REPORT INFORMATION
  Report Type: Spontaneous
  Country: US (occurrence: US)
  Receive Date: 20240109
  Receipt Date: 20240310
  Transmission Date: 20240409
  Serious: No
  Sender: FDA-Public Use
  Company Number: US-BRISTOL-MYERS SQUIBB COMPANY-2024-004400

PATIENT
  Age: 69 Year
  Sex: Female
  Weight: 64.86 kg

DRUGS (1)
  1. REVLIMID [Suspect]
     Active Substance: LENALIDOMIDE
     Indication: Myelodysplastic syndrome
     Dosage: EVERY OTHER DAY
     Route: 048

REACTIONS (6)
  - Arthralgia [Unknown]
  - Musculoskeletal stiffness [Unknown]
  - Dyspepsia [Unknown]
  - Off label use [Unknown]
  - Pain in extremity [Unknown]
  - Red blood cell abnormality [Unknown]
